FAERS Safety Report 5140186-7 (Version None)
Quarter: 2006Q4

REPORT INFORMATION
  Report Type: 
  Country: None (occurrence: None)
  Receive Date: 20061031
  Receipt Date: 20060125
  Transmission Date: 20070319
  Serious: Yes (Hospitalization)
  Sender: FDA-Public Use
  Company Number: GB-BRISTOL-MYERS SQUIBB COMPANY-13259833

PATIENT
  Age: 37 Year
  Sex: Male

DRUGS (3)
  1. CISPLATIN [Suspect]
     Indication: GASTRIC CANCER
     Route: 041
     Dates: start: 20051229, end: 20051229
  2. TS-1 [Suspect]
     Indication: GASTRIC CANCER
     Route: 048
     Dates: start: 20051229, end: 20051229
  3. CERUCAL [Concomitant]
     Indication: NAUSEA
     Route: 042
     Dates: start: 20060111, end: 20060113

REACTIONS (1)
  - DEHYDRATION [None]
